FAERS Safety Report 4383164-8 (Version None)
Quarter: 2004Q2

REPORT INFORMATION
  Report Type: 
  Country: None (occurrence: None)
  Receive Date: 20040622
  Receipt Date: 20040622
  Transmission Date: 20050107
  Serious: Yes (Other)
  Sender: FDA-Public Use
  Company Number: None

PATIENT
  Sex: Female

DRUGS (1)
  1. FLURAZEPAM [Suspect]
     Indication: INSOMNIA
     Dosage: 30MG 1-2/DAY ORAL
     Route: 048
     Dates: start: 20040527

REACTIONS (1)
  - DYSGEUSIA [None]
